FAERS Safety Report 13621914 (Version 1)
Quarter: 2017Q2

REPORT INFORMATION
  Report Type: Spontaneous
  Country: US (occurrence: US)
  Receive Date: 20170607
  Receipt Date: 20170607
  Transmission Date: 20170830
  Serious: No
  Sender: FDA-Public Use
  Company Number: US-ROCHE-1803351

PATIENT
  Sex: Female

DRUGS (1)
  1. XELODA [Suspect]
     Active Substance: CAPECITABINE
     Indication: NEOPLASM MALIGNANT
     Dosage: 7 DAYS ON AND 7 DAYS OFF, REPEAT
     Route: 048
     Dates: start: 20160703

REACTIONS (2)
  - Overdose [Unknown]
  - No adverse event [Unknown]
